FAERS Safety Report 10257295 (Version 2)
Quarter: 2014Q3

REPORT INFORMATION
  Report Type: Spontaneous
  Country: TW (occurrence: TW)
  Receive Date: 20140625
  Receipt Date: 20140704
  Transmission Date: 20150326
  Serious: Yes (Death, Other)
  Sender: FDA-Public Use
  Company Number: TW-CELGENEUS-153-20785-14063175

PATIENT
  Age: 73 Year
  Sex: Female

DRUGS (1)
  1. THALIDOMIDE [Suspect]
     Active Substance: THALIDOMIDE
     Indication: ANGIOSARCOMA
     Dosage: 200 MILLIGRAM
     Route: 048

REACTIONS (3)
  - Cardiac failure high output [Unknown]
  - Angiosarcoma [Unknown]
  - Hepatic failure [Fatal]
